FAERS Safety Report 25685512 (Version 1)
Quarter: 2025Q3

REPORT INFORMATION
  Report Type: Report from Study
  Country: US (occurrence: US)
  Receive Date: 20250815
  Receipt Date: 20250815
  Transmission Date: 20251021
  Serious: Yes (Hospitalization)
  Sender: PFIZER
  Company Number: US-PFIZER INC-202500163235

PATIENT
  Age: 31 Year
  Sex: Female

DRUGS (14)
  1. MEKTOVI [Suspect]
     Active Substance: BINIMETINIB
     Dosage: TAKE 3 TABLETS (45MG TOTAL) BY MOUTH TWICE DAILY
     Route: 048
     Dates: start: 20250727
  2. BRAFTOVI [Suspect]
     Active Substance: ENCORAFENIB
     Dosage: TAKE 6 CAPSULES (450MG TOTAL) BY MOUTH ONCE DAILY
     Route: 048
     Dates: start: 20250727
  3. DILAUDID [Suspect]
     Active Substance: HYDROMORPHONE HYDROCHLORIDE
  4. LIDOCAINE [Concomitant]
     Active Substance: LIDOCAINE
  5. PREDNISONE [Concomitant]
     Active Substance: PREDNISONE
  6. BACTRIM [Concomitant]
     Active Substance: SULFAMETHOXAZOLE\TRIMETHOPRIM
  7. KETOCONAZOLE [Concomitant]
     Active Substance: KETOCONAZOLE
  8. KETOCONAZOLE [Concomitant]
     Active Substance: KETOCONAZOLE
  9. FENTANYL CITRATE [Concomitant]
     Active Substance: FENTANYL CITRATE
  10. HYDROMORPHONE [Concomitant]
     Active Substance: HYDROMORPHONE
  11. GABAPENTIN [Concomitant]
     Active Substance: GABAPENTIN
  12. TYLENOL [Concomitant]
     Active Substance: ACETAMINOPHEN
  13. METHOCARBAMOL [Concomitant]
     Active Substance: METHOCARBAMOL
  14. OXYCODONE [Concomitant]
     Active Substance: OXYCODONE

REACTIONS (4)
  - Hyperhidrosis [Not Recovered/Not Resolved]
  - Rash papular [Not Recovered/Not Resolved]
  - Visual impairment [Not Recovered/Not Resolved]
  - Metamorphopsia [Not Recovered/Not Resolved]

NARRATIVE: CASE EVENT DATE: 20250727
